FAERS Safety Report 9643906 (Version 1)
Quarter: 2013Q4

REPORT INFORMATION
  Report Type: Spontaneous
  Country: US (occurrence: US)
  Receive Date: 20131024
  Receipt Date: 20131024
  Transmission Date: 20140711
  Serious: No
  Sender: FDA-Public Use
  Company Number: US-009507513-1309USA011881

PATIENT
  Age: 57 Year
  Sex: Male

DRUGS (1)
  1. VICTRELIS [Suspect]
     Indication: HEPATITIS C
     Dosage: 800 MG, TID
     Route: 048
     Dates: start: 20130611

REACTIONS (5)
  - Skin exfoliation [Unknown]
  - Erythema [Unknown]
  - Depression [Unknown]
  - Fatigue [Unknown]
  - Amnesia [Unknown]
